FAERS Safety Report 15580670 (Version 1)
Quarter: 2018Q4

REPORT INFORMATION
  Report Type: Spontaneous
  Country: US (occurrence: US)
  Receive Date: 20181102
  Receipt Date: 20181102
  Transmission Date: 20190205
  Serious: No
  Sender: FDA-Public Use
  Company Number: US-MIST-TIR-2018-0271

PATIENT
  Sex: Female

DRUGS (3)
  1. FERTILITY MEDICATION [Suspect]
     Active Substance: UNSPECIFIED INGREDIENT
     Indication: INFERTILITY
  2. TIROSINT [Suspect]
     Active Substance: LEVOTHYROXINE SODIUM
     Indication: PRODUCT USED FOR UNKNOWN INDICATION
     Route: 048
  3. VITAMIN D [Concomitant]
     Active Substance: CHOLECALCIFEROL
     Indication: PRODUCT USED FOR UNKNOWN INDICATION

REACTIONS (5)
  - Drug level below therapeutic [Unknown]
  - Pregnancy [Unknown]
  - Therapeutic response unexpected [Unknown]
  - Exposure during pregnancy [Unknown]
  - Drug interaction [Unknown]
